FAERS Safety Report 6661698 (Version 2)
Quarter: 2013Q1

REPORT INFORMATION
  Report Type: Spontaneous
  Country: FR (occurrence: FR)
  Receive Date: 20080610
  Receipt Date: 20130314
  Transmission Date: 20140127
  Serious: Yes (Death, Other)
  Sender: FDA-Public Use
  Company Number: FR-PFIZER INC-2008047979

PATIENT
  Age: 27 Year
  Sex: Female

DRUGS (5)
  1. NEURONTIN [Suspect]
     Indication: EPILEPSY
     Dosage: 800 MG, 3X/DAY
     Route: 048
  2. EPITOMAX [Suspect]
     Dosage: 100 MG, 2X/DAY
     Route: 048
  3. EPITOMAX [Suspect]
     Dosage: 100MG IN THE MORNING AND 125MG IN THE EVENING
     Route: 048
  4. EPITOMAX [Suspect]
     Dosage: 125 MG, 2X/DAY
     Route: 048
     Dates: start: 20080326
  5. FOLIC ACID [Concomitant]
     Dosage: 5 MG, DAILY

REACTIONS (1)
  - Foetal death [Fatal]
